FAERS Safety Report 6311001-0 (Version None)
Quarter: 2009Q3

REPORT INFORMATION
  Report Type: 
  Country: None (occurrence: None)
  Receive Date: 20090817
  Receipt Date: 20090810
  Transmission Date: 20100115
  Serious: Yes (Other)
  Sender: FDA-Public Use
  Company Number: US-BIOGENIDEC-2009BI022042

PATIENT
  Sex: Female

DRUGS (2)
  1. AVONEX [Suspect]
     Indication: MULTIPLE SCLEROSIS
     Route: 030
     Dates: start: 20070718, end: 20080201
  2. AVONEX [Suspect]
     Route: 030
     Dates: start: 19980101, end: 19990720

REACTIONS (2)
  - CONVERSION DISORDER [None]
  - TRANSFUSION [None]
